FAERS Safety Report 10534055 (Version 2)
Quarter: 2014Q4

REPORT INFORMATION
  Report Type: Spontaneous
  Country: US (occurrence: US)
  Receive Date: 20141022
  Receipt Date: 20141229
  Transmission Date: 20150529
  Serious: No
  Sender: FDA-Public Use
  Company Number: US-ASTRAZENECA-2014SE77339

PATIENT
  Age: 809 Month
  Sex: Female
  Weight: 72.6 kg

DRUGS (4)
  1. PAIN PILLS [Concomitant]
     Active Substance: UNSPECIFIED INGREDIENT
  2. ANOTHER INHALER [Concomitant]
  3. NEBULIZER [Concomitant]
     Active Substance: UNSPECIFIED INGREDIENT
  4. SYMBICORT [Suspect]
     Active Substance: BUDESONIDE\FORMOTEROL FUMARATE DIHYDRATE
     Indication: ASTHMA
     Dosage: 160 4.5 2 PUFFS TWICE DAILY
     Route: 055
     Dates: end: 201409

REACTIONS (4)
  - Sinusitis [Unknown]
  - Intentional product misuse [Unknown]
  - Procedural pain [Unknown]
  - Drug dose omission [Unknown]

NARRATIVE: CASE EVENT DATE: 2014
